FAERS Safety Report 19202183 (Version 3)
Quarter: 2021Q2

REPORT INFORMATION
  Report Type: Report from Study
  Country: RU (occurrence: RU)
  Receive Date: 20210430
  Receipt Date: 20210611
  Transmission Date: 20210717
  Serious: No
  Sender: FDA-Public Use
  Company Number: RU-ROCHE-2817138

PATIENT
  Age: 67 Year
  Sex: Male
  Weight: 79.9 kg

DRUGS (8)
  1. EUTIROX [Concomitant]
     Active Substance: LEVOTHYROXINE SODIUM
     Indication: HYPOTHYROIDISM
     Route: 048
     Dates: start: 20210415
  2. ATEZOLIZUMAB. [Suspect]
     Active Substance: ATEZOLIZUMAB
     Indication: RENAL CELL CARCINOMA
     Dosage: MOST RECENT DOSE 1200 MG OF ATEZOLIZUMAB PRIOR TO AE ON 31/MAR/2021
     Route: 041
     Dates: start: 20210331
  3. URSOFALK [Concomitant]
     Active Substance: URSODIOL
     Indication: HEPATOTOXICITY
     Route: 048
     Dates: start: 20210421
  4. SIMVASTATIN. [Concomitant]
     Active Substance: SIMVASTATIN
     Indication: HYPERTENSION
     Route: 048
     Dates: start: 20201013
  5. CABOZANTINIB [Suspect]
     Active Substance: CABOZANTINIB
     Indication: RENAL CELL CARCINOMA
     Dosage: MOST RECENT DOSE 60 MG OF CABOZANTINIB PRIOR TO AE ON 20/APR/2021
     Route: 048
     Dates: start: 20210331
  6. PANTOPRAZOLE [Concomitant]
     Active Substance: PANTOPRAZOLE
     Indication: CHRONIC GASTRITIS
     Route: 048
     Dates: start: 20170523
  7. METROGIL DENTA [Concomitant]
     Indication: STOMATITIS
     Dosage: DOSE 200 (UNIT NOT REPORTED)
     Route: 065
     Dates: start: 20210421, end: 20210429
  8. HEPTRAL [Concomitant]
     Active Substance: ADEMETIONINE
     Indication: HEPATOTOXICITY
     Route: 048
     Dates: start: 20210421

REACTIONS (1)
  - Alanine aminotransferase increased [Not Recovered/Not Resolved]

NARRATIVE: CASE EVENT DATE: 20210421
